FAERS Safety Report 5939531-1 (Version None)
Quarter: 2008Q4

REPORT INFORMATION
  Report Type: 
  Country: None (occurrence: None)
  Receive Date: 20081030
  Receipt Date: 20081021
  Transmission Date: 20090506
  Serious: Yes (Death, Other)
  Sender: FDA-Public Use
  Company Number: US-JNJFOC-20081006059

PATIENT
  Age: 81 Year
  Sex: Male

DRUGS (2)
  1. DACOGEN [Suspect]
     Indication: DRUG USE FOR UNKNOWN INDICATION
     Dosage: INTRAVENOUS
  2. REVLIMID [Suspect]
     Indication: MULTIPLE MYELOMA
     Dosage: 5 MG, 1 IN 1 DAY, ORAL
     Route: 048
     Dates: start: 20080101, end: 20080301

REACTIONS (3)
  - BONE MARROW FAILURE [None]
  - HAEMOLYTIC ANAEMIA [None]
  - SEPSIS [None]
